FAERS Safety Report 24948396 (Version 4)
Quarter: 2025Q4

REPORT INFORMATION
  Report Type: Other
  Country: US (occurrence: US)
  Receive Date: 20250210
  Receipt Date: 20251124
  Transmission Date: 20260118
  Serious: No
  Sender: TRAVERE THERAPEUTICS
  Company Number: US-TRAVERE-2025TVT00141

PATIENT
  Age: 54 Year
  Sex: Female

DRUGS (2)
  1. FILSPARI [Suspect]
     Active Substance: SPARSENTAN
     Indication: IgA nephropathy
     Route: 048
  2. FILSPARI [Suspect]
     Active Substance: SPARSENTAN
     Route: 048
     Dates: start: 20250114

REACTIONS (11)
  - Rash pruritic [Unknown]
  - Blood pressure increased [Unknown]
  - Nasal congestion [Unknown]
  - Cough [Unknown]
  - Flatulence [Unknown]
  - Abdominal distension [Unknown]
  - Abdominal pain upper [Recovering/Resolving]
  - Blood pressure decreased [Recovered/Resolved]
  - Dyspnoea [Recovering/Resolving]
  - Blood cholesterol increased [Unknown]
  - Product administration error [Unknown]

NARRATIVE: CASE EVENT DATE: 20250310
